FAERS Safety Report 25872466 (Version 1)
Quarter: 2025Q4

REPORT INFORMATION
  Report Type: Spontaneous
  Country: US (occurrence: US)
  Receive Date: 20251002
  Receipt Date: 20251002
  Transmission Date: 20260118
  Serious: Yes (Other)
  Sender: AUROBINDO
  Company Number: US-AUROBINDO-AUR-APL-2025-046903

PATIENT
  Age: 38 Year
  Sex: Female
  Weight: 74 kg

DRUGS (8)
  1. RIVAROXABAN [Suspect]
     Active Substance: RIVAROXABAN
     Indication: Anticoagulation drug level
     Dosage: 20 MILLIGRAM, ONCE A DAY (NIGHTLY)
     Route: 065
  2. PROPOFOL [Concomitant]
     Active Substance: PROPOFOL
     Indication: Anaesthesia
     Dosage: UNK (140 MCG/KG/MIN)
     Route: 042
  3. PROPOFOL [Concomitant]
     Active Substance: PROPOFOL
     Dosage: 2.5 MICROGRAM/KILOGRAM
     Route: 065
  4. DEXMEDETOMIDINE [Concomitant]
     Active Substance: DEXMEDETOMIDINE
     Indication: Antiemetic supportive care
     Dosage: UNK (0.7 MCG/KG/HOUR)
     Route: 065
  5. FENTANYL [Concomitant]
     Active Substance: FENTANYL
     Indication: Prophylaxis of nausea and vomiting
     Dosage: 1.25 MICROGRAM/KILOGRAM
     Route: 042
  6. ROCURONIUM [Concomitant]
     Active Substance: ROCURONIUM BROMIDE
     Indication: Prophylaxis of nausea and vomiting
     Dosage: 0.6 MILLIGRAM/KILOGRAM
     Route: 065
  7. DEXAMETHASONE [Concomitant]
     Active Substance: DEXAMETHASONE
     Indication: Prophylaxis of nausea and vomiting
     Dosage: 8 MILLIGRAM
     Route: 065
  8. ONDANSETRON [Concomitant]
     Active Substance: ONDANSETRON
     Indication: Prophylaxis of nausea and vomiting
     Dosage: 8 MILLIGRAM
     Route: 065

REACTIONS (1)
  - Off label use [Unknown]
